FAERS Safety Report 5935203-8 (Version None)
Quarter: 2008Q4

REPORT INFORMATION
  Report Type: 
  Country: None (occurrence: None)
  Receive Date: 20081028
  Receipt Date: 20081013
  Transmission Date: 20090506
  Serious: Yes (Other)
  Sender: FDA-Public Use
  Company Number: 2008S1018737

PATIENT
  Age: 70 Year
  Sex: Female
  Weight: 92.9874 kg

DRUGS (14)
  1. FENTANYL TRANSDERMAL SYSTEM [Suspect]
     Indication: CANCER PAIN
     Dosage: 75 UG; EVERY HOUR; TRANSDERMAL
     Route: 062
     Dates: start: 20050101
  2. KLOR-CON [Concomitant]
  3. CRESTOR [Concomitant]
  4. GABAPENTIN [Concomitant]
  5. HYDROCHLOROTHIAZIDE [Concomitant]
  6. BUPROPION HYDROCHLORIDE [Concomitant]
  7. SYNTHROID [Concomitant]
  8. ALPRAZOLAM [Concomitant]
  9. DYNACIRC [Concomitant]
  10. LEXAPRO [Concomitant]
  11. LUNESTA [Concomitant]
  12. STOOL SOFTENER [Concomitant]
  13. VITAMIN B-12 [Concomitant]
  14. M.V.I. [Concomitant]

REACTIONS (5)
  - DEVICE FAILURE [None]
  - DRUG DEPENDENCE [None]
  - DRUG WITHDRAWAL SYNDROME [None]
  - NERVOUSNESS [None]
  - THERAPEUTIC RESPONSE DECREASED [None]
